FAERS Safety Report 10508518 (Version 1)
Quarter: 2014Q4

REPORT INFORMATION
  Report Type: Spontaneous
  Country: US (occurrence: None)
  Receive Date: 20141008
  Receipt Date: 20141008
  Transmission Date: 20150528
  Serious: Yes (Hospitalization)
  Sender: FDA-Public Use
  Company Number: None

PATIENT
  Age: 56 Year
  Sex: Female
  Weight: 64.5 kg

DRUGS (1)
  1. IODIXANOL [Suspect]
     Active Substance: IODIXANOL
     Indication: UROGRAM
     Dates: start: 20140530, end: 20140530

REACTIONS (2)
  - Angina pectoris [None]
  - Dyspnoea [None]

NARRATIVE: CASE EVENT DATE: 20140530
